FAERS Safety Report 6985397-0 (Version None)
Quarter: 2010Q3

REPORT INFORMATION
  Report Type: 
  Country: None (occurrence: None)
  Receive Date: 20100915
  Receipt Date: 20100915
  Transmission Date: 20110219
  Serious: Yes (Other)
  Sender: FDA-Public Use
  Company Number: US-PFIZER INC-2010083305

PATIENT
  Sex: Male
  Weight: 90.703 kg

DRUGS (7)
  1. DETROL [Suspect]
     Indication: POLLAKIURIA
     Dosage: 2 MG, 1X/DAY
     Route: 048
     Dates: start: 20100201, end: 20100101
  2. DETROL [Suspect]
     Dosage: 4 MG DAILY
     Route: 048
     Dates: start: 20100401, end: 20100101
  3. DETROL LA [Suspect]
     Indication: POLLAKIURIA
     Dosage: 2 MG, 1X/DAY
     Route: 048
     Dates: start: 20100509, end: 20100601
  4. DETROL LA [Suspect]
     Dosage: 4 MG DAILY
     Route: 048
     Dates: start: 20100609, end: 20100619
  5. ACTOS [Concomitant]
     Indication: DIABETES MELLITUS
     Dosage: 45 MG, 1X/DAY
     Route: 048
  6. SITAGLIPTIN [Concomitant]
     Indication: DIABETES MELLITUS
     Dosage: 100 MG, 1X/DAY
     Route: 048
  7. GLIMEPIRIDE [Concomitant]
     Indication: DIABETES MELLITUS
     Dosage: 4 MG, 2X/DAY
     Route: 048

REACTIONS (6)
  - DIZZINESS [None]
  - DRUG INEFFECTIVE [None]
  - DRY MOUTH [None]
  - HEART RATE DECREASED [None]
  - NAUSEA [None]
  - OROPHARYNGEAL BLISTERING [None]
